FAERS Safety Report 10223901 (Version 2)
Quarter: 2014Q2

REPORT INFORMATION
  Report Type: Spontaneous
  Country: US (occurrence: EG)
  Receive Date: 20140609
  Receipt Date: 20140620
  Transmission Date: 20141212
  Serious: Yes (Hospitalization, Other)
  Sender: FDA-Public Use
  Company Number: EG-AMGEN-EGYSP2014041583

PATIENT
  Age: 69 Year
  Sex: Female

DRUGS (8)
  1. PROLIA [Suspect]
     Indication: OSTEOPOROSIS POSTMENOPAUSAL
     Dosage: 60 MG, Q6MO
     Route: 065
  2. METHOTREXATE [Concomitant]
  3. VITAMIN D                          /00107901/ [Concomitant]
  4. PREDNISONE [Concomitant]
  5. IRON [Concomitant]
  6. FISH OIL [Concomitant]
  7. FOLIC ACID [Concomitant]
  8. CALCIUM [Concomitant]

REACTIONS (12)
  - Cardiomegaly [Unknown]
  - Chest pain [Unknown]
  - Calcinosis [Unknown]
  - Pulmonary calcification [Unknown]
  - Dyspnoea [Unknown]
  - Hypertension [Unknown]
  - Heart rate increased [Unknown]
  - Hypoaesthesia [Unknown]
  - Lymph gland infection [Unknown]
  - Feeling hot [Unknown]
  - Blood cholesterol increased [Unknown]
  - Gastrooesophageal reflux disease [Unknown]
